FAERS Safety Report 4426421-9 (Version None)
Quarter: 2004Q3

REPORT INFORMATION
  Report Type: 
  Country: None (occurrence: None)
  Receive Date: 20040811
  Receipt Date: 20040726
  Transmission Date: 20050211
  Serious: Yes (Hospitalization)
  Sender: FDA-Public Use
  Company Number: DE_040714008

PATIENT
  Age: 37 Year
  Sex: Female

DRUGS (3)
  1. ZYPREXA [Suspect]
     Indication: DELUSION
     Dates: start: 20040227, end: 20040319
  2. LORAZEPAM [Concomitant]
  3. INDIVINA [Concomitant]

REACTIONS (1)
  - LIPASE INCREASED [None]
